FAERS Safety Report 12486428 (Version 1)
Quarter: 2016Q2

REPORT INFORMATION
  Report Type: Spontaneous
  Country: US (occurrence: US)
  Receive Date: 20160621
  Receipt Date: 20160621
  Transmission Date: 20160815
  Serious: No
  Sender: FDA-Public Use
  Company Number: US-PFIZER INC-2016284142

PATIENT
  Sex: Female

DRUGS (3)
  1. IBUPROFEN. [Suspect]
     Active Substance: IBUPROFEN
  2. ASPARTAME [Suspect]
     Active Substance: ASPARTAME
  3. LYRICA [Suspect]
     Active Substance: PREGABALIN

REACTIONS (2)
  - Liver disorder [Unknown]
  - Drug hypersensitivity [Unknown]
